FAERS Safety Report 7221433-4 (Version None)
Quarter: 2011Q1

REPORT INFORMATION
  Report Type: 
  Country: None (occurrence: None)
  Receive Date: 20110112
  Receipt Date: 20110104
  Transmission Date: 20110831
  Serious: Yes (Other)
  Sender: FDA-Public Use
  Company Number: ES-ELI_LILLY_AND_COMPANY-ES201101000507

PATIENT
  Sex: Male
  Weight: 61 kg

DRUGS (2)
  1. NOLOTIL [Concomitant]
     Indication: PAIN
     Dosage: UNK, AS NEEDED
     Route: 048
  2. FORTEO [Suspect]
     Indication: FRACTURE
     Dosage: 20 UG, DAILY (1/D)
     Route: 058
     Dates: start: 20100806, end: 20101028

REACTIONS (2)
  - OFF LABEL USE [None]
  - FRACTURE MALUNION [None]
